FAERS Safety Report 25427942 (Version 2)
Quarter: 2025Q2

REPORT INFORMATION
  Report Type: Spontaneous
  Country: US (occurrence: US)
  Receive Date: 20250612
  Receipt Date: 20250630
  Transmission Date: 20250717
  Serious: No
  Sender: GLAXOSMITHKLINE
  Company Number: US-GSK-US2025AMR072369

PATIENT
  Age: 67 Year
  Sex: Female

DRUGS (4)
  1. ZEJULA [Suspect]
     Active Substance: NIRAPARIB
     Indication: Swelling
     Dosage: 200 MG, QD
     Dates: start: 202411
  2. ZEJULA [Suspect]
     Active Substance: NIRAPARIB
     Indication: Abdominal mass
     Dosage: 100 MG, QD
     Dates: start: 202502
  3. ZEJULA [Suspect]
     Active Substance: NIRAPARIB
     Indication: Pelvic mass
  4. ZEJULA [Suspect]
     Active Substance: NIRAPARIB
     Indication: Malignant peritoneal neoplasm

REACTIONS (6)
  - Haemoglobin decreased [Recovered/Resolved]
  - Adverse drug reaction [Recovered/Resolved]
  - Throat tightness [Not Recovered/Not Resolved]
  - Dysphonia [Not Recovered/Not Resolved]
  - Inappropriate schedule of product administration [Unknown]
  - Product use in unapproved indication [Unknown]

NARRATIVE: CASE EVENT DATE: 20241101
